APPROVED DRUG PRODUCT: TRUDHESA
Active Ingredient: DIHYDROERGOTAMINE MESYLATE
Strength: 0.725MG/SPRAY
Dosage Form/Route: SPRAY, METERED;NASAL
Application: N213436 | Product #001
Applicant: IMPEL PHARMACEUTICALS LLC
Approved: Sep 2, 2021 | RLD: Yes | RS: Yes | Type: RX

PATENTS:
Patent 11185497 | Expires: Jan 4, 2039
Patent 9919117 | Expires: Mar 17, 2033
Patent 10940278 | Expires: Jan 23, 2033
Patent 9550036 | Expires: Sep 5, 2032
Patent 10507295 | Expires: Dec 25, 2032
Patent 11266799 | Expires: Nov 5, 2036